FAERS Safety Report 12098435 (Version 1)
Quarter: 2016Q1

REPORT INFORMATION
  Report Type: Spontaneous
  Country: US (occurrence: US)
  Receive Date: 20160222
  Receipt Date: 20160222
  Transmission Date: 20160526
  Serious: No
  Sender: FDA-Public Use
  Company Number: US-ASTRAZENECA-2016SE15367

PATIENT
  Sex: Male

DRUGS (2)
  1. PULMICORT FLEXHALER [Suspect]
     Active Substance: BUDESONIDE
     Dosage: 180MCG, 1 PUFF ONCE A DAY
     Route: 055
  2. THEOPHYLLINE [Concomitant]
     Active Substance: THEOPHYLLINE ANHYDROUS

REACTIONS (4)
  - Ageusia [Unknown]
  - Off label use [Unknown]
  - Drug dose omission [Unknown]
  - Product quality issue [Unknown]
